FAERS Safety Report 7971414 (Version 4)
Quarter: 2017Q3

REPORT INFORMATION
  Report Type: Report from Study
  Country: DE (occurrence: DE)
  Receive Date: 20110602
  Receipt Date: 20170830
  Transmission Date: 20171128
  Serious: Yes (Hospitalization)
  Sender: FDA-Public Use
  Company Number: DE-CELGENEUS-062-21880-11033414

PATIENT
  Age: 64 Year
  Sex: Male
  Weight: 95 kg

DRUGS (5)
  1. REVLIMID [Suspect]
     Active Substance: LENALIDOMIDE
     Indication: PLASMA CELL MYELOMA
     Dosage: 5 MILLIGRAM
     Route: 048
     Dates: start: 20100127
  2. TREOSULFAN [Suspect]
     Active Substance: TREOSULFAN
     Indication: PLASMA CELL MYELOMA
     Dosage: 250 MILLIGRAM
     Route: 048
     Dates: start: 20100127
  3. DEXAMETHASONE. [Suspect]
     Active Substance: DEXAMETHASONE
     Route: 048
     Dates: start: 20100127
  4. DEXAMETHASONE. [Suspect]
     Active Substance: DEXAMETHASONE
     Indication: PLASMA CELL MYELOMA
     Route: 048
     Dates: start: 20100127
  5. PIOGLITAZONE. [Suspect]
     Active Substance: PIOGLITAZONE
     Indication: PLASMA CELL MYELOMA
     Dosage: 60 MILLIGRAM
     Route: 048
     Dates: start: 20100127

REACTIONS (1)
  - Osteonecrosis of jaw [Recovered/Resolved with Sequelae]

NARRATIVE: CASE EVENT DATE: 20110329
